FAERS Safety Report 8564863-0 (Version None)
Quarter: 2012Q3

REPORT INFORMATION
  Report Type: 
  Country: None (occurrence: None)
  Receive Date: 20120803
  Receipt Date: 20120510
  Transmission Date: 20120928
  Serious: No
  Sender: FDA-Public Use
  Company Number: US-GLAXOSMITHKLINE-A0977160A

PATIENT
  Age: 87 Year
  Sex: Female

DRUGS (5)
  1. GABAPENTIN [Suspect]
     Indication: NEUROPATHY PERIPHERAL
     Dosage: 400MG PER DAY
     Dates: start: 20120301, end: 20120506
  2. ROPINIROLE [Suspect]
     Indication: RESTLESS LEGS SYNDROME
     Dosage: 3MG PER DAY
     Route: 048
     Dates: start: 20120301
  3. ALPRAZOLAM [Concomitant]
  4. HORIZANT [Suspect]
     Indication: NEUROPATHY PERIPHERAL
     Dosage: 600MG SINGLE DOSE
     Route: 048
     Dates: start: 20120507, end: 20120507
  5. IMODIUM [Concomitant]

REACTIONS (7)
  - ABDOMINAL PAIN [None]
  - FLATULENCE [None]
  - NAUSEA [None]
  - THERAPEUTIC RESPONSE UNEXPECTED [None]
  - PAIN [None]
  - DIARRHOEA [None]
  - CONSTIPATION [None]
